FAERS Safety Report 8293782-2 (Version None)
Quarter: 2012Q2

REPORT INFORMATION
  Report Type: 
  Country: None (occurrence: None)
  Receive Date: 20120418
  Receipt Date: 20120412
  Transmission Date: 20120825
  Serious: Yes (Hospitalization)
  Sender: FDA-Public Use
  Company Number: US-BAYER-201028801NA

PATIENT
  Age: 26 Year
  Sex: Female
  Weight: 69.388 kg

DRUGS (6)
  1. TYLENOL (CAPLET) [Concomitant]
     Indication: PAIN
     Dosage: UNK UNK, PRN
  2. NEXIUM [Concomitant]
     Indication: DYSPEPSIA
     Dosage: UNK
     Dates: start: 20040101, end: 20090101
  3. YASMIN [Suspect]
     Indication: PRODUCT USED FOR UNKNOWN INDICATION
     Dosage: UNK
     Dates: start: 20070101, end: 20070801
  4. YASMIN [Suspect]
     Dosage: UNK
     Dates: start: 20080101, end: 20080301
  5. ANTIBIOTICS [Concomitant]
     Dosage: UNK
     Dates: start: 20041201, end: 20080201
  6. IBUPROFEN (ADVIL) [Concomitant]
     Indication: PAIN
     Dosage: UNK UNK, PRN

REACTIONS (2)
  - PULMONARY EMBOLISM [None]
  - OEDEMA PERIPHERAL [None]
